FAERS Safety Report 4710007-2 (Version None)
Quarter: 2005Q3

REPORT INFORMATION
  Report Type: 
  Country: None (occurrence: None)
  Receive Date: 20050708
  Receipt Date: 20050510
  Transmission Date: 20060218
  Serious: Yes (Other)
  Sender: FDA-Public Use
  Company Number: PHNU2005DE01911

PATIENT
  Sex: Female
  Weight: 77 kg

DRUGS (3)
  1. ZOMETA [Suspect]
     Indication: BREAST CANCER METASTATIC
     Dosage: 4 MG, QMO
     Route: 042
     Dates: start: 20040901, end: 20050401
  2. MITOMYCIN [Concomitant]
     Indication: METASTASIS
     Dosage: 15 MG
     Route: 042
     Dates: start: 20040901, end: 20050301
  3. NAVELBINE [Concomitant]
     Indication: BREAST CANCER
     Dosage: 47 MG
     Route: 042
     Dates: start: 20040901, end: 20050301

REACTIONS (1)
  - ASEPTIC NECROSIS BONE [None]
